FAERS Safety Report 4508995-2 (Version None)
Quarter: 2004Q4

REPORT INFORMATION
  Report Type: 
  Country: None (occurrence: None)
  Receive Date: 20041122
  Receipt Date: 20041122
  Transmission Date: 20050328
  Serious: Yes (Hospitalization)
  Sender: FDA-Public Use
  Company Number: None

PATIENT
  Age: 84 Year
  Sex: Female

DRUGS (8)
  1. PREDNISONE [Suspect]
     Indication: ANGIONEUROTIC OEDEMA
     Dosage: TAPER ORAL
     Route: 048
     Dates: start: 20040705, end: 20040708
  2. NORVASC [Concomitant]
  3. TENORMIN [Concomitant]
  4. LIPITOR [Concomitant]
  5. LASIX [Concomitant]
  6. POTASSIUM CHLORIDE [Concomitant]
  7. FAMOTIDINE [Concomitant]
  8. DIPHENHYDRAMINE [Concomitant]

REACTIONS (4)
  - CONFUSIONAL STATE [None]
  - MEMORY IMPAIRMENT [None]
  - MENTAL STATUS CHANGES [None]
  - TREATMENT NONCOMPLIANCE [None]
